FAERS Safety Report 19900313 (Version 1)
Quarter: 2021Q3

REPORT INFORMATION
  Report Type: Spontaneous
  Country: CA (occurrence: CA)
  Receive Date: 20210930
  Receipt Date: 20210930
  Transmission Date: 20211014
  Serious: Yes (Life-Threatening, Hospitalization, Other)
  Sender: FDA-Public Use
  Company Number: CA-SA-2021SA319345

PATIENT
  Age: 62 Year
  Sex: Female

DRUGS (14)
  1. FISH OIL [Suspect]
     Active Substance: FISH OIL
  2. GLYCOPYRRONIUM [Suspect]
     Active Substance: GLYCOPYRRONIUM
  3. LIOTHYRONINE SODIUM. [Suspect]
     Active Substance: LIOTHYRONINE SODIUM
  4. ACETYLSALICYLIC ACID [Suspect]
     Active Substance: ASPIRIN
  5. FORMOTEROL FUMARATE [Suspect]
     Active Substance: FORMOTEROL FUMARATE
     Indication: ASTHMA
  6. CALCIUM [Suspect]
     Active Substance: CALCIUM
  7. DHA [Suspect]
     Active Substance: DIETARY SUPPLEMENT
  8. PREDNISONE. [Suspect]
     Active Substance: PREDNISONE
     Indication: ASTHMA
  9. VENTOLIN HFA [Suspect]
     Active Substance: ALBUTEROL SULFATE
     Indication: ASTHMA
  10. VITAMIN D NOS [Suspect]
     Active Substance: VITAMIN D NOS
  11. RANITIDINE HYDROCHLORIDE. [Suspect]
     Active Substance: RANITIDINE HYDROCHLORIDE
     Dosage: UNK
  12. MEPOLIZUMAB [Suspect]
     Active Substance: MEPOLIZUMAB
     Indication: ASTHMA
  13. PULMICORT TURBUHALER [Suspect]
     Active Substance: BUDESONIDE
  14. BUDESONIDE. [Suspect]
     Active Substance: BUDESONIDE

REACTIONS (11)
  - Peak expiratory flow rate decreased [Unknown]
  - Pneumonia [Unknown]
  - Asthma [Unknown]
  - Therapeutic product effect incomplete [Unknown]
  - Respiratory symptom [Unknown]
  - Hypertension [Unknown]
  - Abdominal distension [Unknown]
  - Cough [Unknown]
  - Inappropriate schedule of product administration [Unknown]
  - Dyspnoea [Unknown]
  - Extra dose administered [Unknown]
